FAERS Safety Report 7749202-7 (Version None)
Quarter: 2011Q3

REPORT INFORMATION
  Report Type: 
  Country: None (occurrence: None)
  Receive Date: 20110909
  Receipt Date: 20110824
  Transmission Date: 20111222
  Serious: Yes (Death, Hospitalization, Other)
  Sender: FDA-Public Use
  Company Number: 1000017111

PATIENT
  Age: 58 Year
  Sex: Female

DRUGS (9)
  1. INSULATARD (INSULIN HUMAN INJECTION, ISOPHANE)(INJECTION)(INSULIN HUMA [Concomitant]
  2. ALBYL-E (ACETYLSALICYLIC ACID)(ACETYLSALICYLIC ACID) [Concomitant]
  3. SIMVASTATIN [Concomitant]
  4. CITALOPRAM HYDROBROMIDE [Suspect]
     Indication: DEPRESSION
     Dosage: 20 MG (20 MG, 1 IN 1 D)
  5. AMITRIPTYLINE HYDROCHLORIDE [Suspect]
     Indication: FIBROMYALGIA
     Dosage: 50 MG (25 MG, 2 IN 1 D)
  6. AMITRIPTYLINE HYDROCHLORIDE [Suspect]
     Indication: PAIN
     Dosage: 50 MG (25 MG, 2 IN 1 D)
  7. METFORMIN HCL [Concomitant]
  8. NOVORAPID (INSULIN ASPART)(INSULIN ASPART) [Concomitant]
  9. CENTYL (BENDROFLUMETHIAZIDE) (BENDROFLUMETHIAZIDE) [Concomitant]

REACTIONS (15)
  - DISSEMINATED INTRAVASCULAR COAGULATION [None]
  - HEPATIC ENZYME INCREASED [None]
  - DRUG INTERACTION [None]
  - RHABDOMYOLYSIS [None]
  - MECHANICAL VENTILATION [None]
  - MUSCLE TWITCHING [None]
  - NYSTAGMUS [None]
  - DIZZINESS [None]
  - SEROTONIN SYNDROME [None]
  - CONFUSIONAL STATE [None]
  - MULTI-ORGAN FAILURE [None]
  - ATAXIA [None]
  - COMA [None]
  - APRAXIA [None]
  - NERVOUS SYSTEM DISORDER [None]
